FAERS Safety Report 9984667 (Version 1)
Quarter: 2014Q1

REPORT INFORMATION
  Report Type: Spontaneous
  Country: US (occurrence: US)
  Receive Date: 20140307
  Receipt Date: 20140307
  Transmission Date: 20141002
  Serious: No
  Sender: FDA-Public Use
  Company Number: US-GLAXOSMITHKLINE-A1057677A

PATIENT
  Age: 63 Year
  Sex: Female

DRUGS (5)
  1. BREO ELLIPTA [Suspect]
     Indication: CHRONIC OBSTRUCTIVE PULMONARY DISEASE
     Dosage: 1PUFF PER DAY
     Route: 055
     Dates: start: 201312
  2. SPIRIVA [Concomitant]
  3. SIMVASTATIN [Concomitant]
  4. VITAMIN D [Concomitant]
  5. ZYRTEC [Concomitant]

REACTIONS (4)
  - Nasopharyngitis [Unknown]
  - Rhinorrhoea [Unknown]
  - Dyspnoea [Unknown]
  - Cough [Unknown]
